FAERS Safety Report 10987532 (Version 2)
Quarter: 2015Q2

REPORT INFORMATION
  Report Type: Spontaneous
  Country: US (occurrence: US)
  Receive Date: 20150404
  Receipt Date: 20150525
  Transmission Date: 20150821
  Serious: Yes (Other)
  Sender: FDA-Public Use
  Company Number: US-JNJFOC-20141013574

PATIENT
  Age: 70 Year
  Sex: Female
  Weight: 60.78 kg

DRUGS (17)
  1. LOMOTIL [Concomitant]
     Active Substance: ATROPINE SULFATE\DIPHENOXYLATE HYDROCHLORIDE
     Dosage: 2, AS NEEDED
     Route: 065
  2. TEMAZEPAM. [Concomitant]
     Active Substance: TEMAZEPAM
     Route: 065
  3. REMICADE [Suspect]
     Active Substance: INFLIXIMAB
     Indication: COLITIS ULCERATIVE
     Dosage: 400 MG
     Route: 042
     Dates: start: 20140908
  4. VITAMINS [Concomitant]
     Active Substance: VITAMINS
     Route: 065
  5. LIALDA [Concomitant]
     Active Substance: MESALAMINE
     Dosage: 4, EACH MORNING
     Route: 065
  6. OMEPRAZOLE. [Concomitant]
     Active Substance: OMEPRAZOLE
     Dosage: 40
     Route: 065
  7. PRAVASTATIN [Concomitant]
     Active Substance: PRAVASTATIN\PRAVASTATIN SODIUM
     Route: 065
  8. AMLODIPINE [Concomitant]
     Active Substance: AMLODIPINE BESYLATE
     Route: 065
  9. DYAZIDE [Concomitant]
     Active Substance: HYDROCHLOROTHIAZIDE\TRIAMTERENE
     Route: 065
  10. REMICADE [Suspect]
     Active Substance: INFLIXIMAB
     Indication: COLITIS ULCERATIVE
     Dosage: 400 MG
     Route: 042
     Dates: start: 20140715
  11. BENAZEPRIL [Concomitant]
     Active Substance: BENAZEPRIL\BENAZEPRIL HYDROCHLORIDE
     Route: 065
  12. MESALAMINE. [Concomitant]
     Active Substance: MESALAMINE
     Indication: ENEMA ADMINISTRATION
     Route: 065
  13. HORMONE CREAM [Concomitant]
     Route: 065
  14. VITAMIN B12 [Concomitant]
     Active Substance: CYANOCOBALAMIN
     Route: 065
  15. BILBERRY [Concomitant]
     Active Substance: BILBERRY
     Route: 065
  16. BIOTIN [Concomitant]
     Active Substance: BIOTIN
     Route: 065
  17. EFFEXOR XR [Concomitant]
     Active Substance: VENLAFAXINE HYDROCHLORIDE
     Dosage: 225
     Route: 065

REACTIONS (2)
  - Sinusitis [Unknown]
  - Rash erythematous [Unknown]

NARRATIVE: CASE EVENT DATE: 201409
